FAERS Safety Report 6542832-X (Version None)
Quarter: 2010Q1

REPORT INFORMATION
  Report Type: 
  Country: None (occurrence: None)
  Receive Date: 20100114
  Receipt Date: 20100104
  Transmission Date: 20100710
  Serious: Yes (Other)
  Sender: FDA-Public Use
  Company Number: 2009AP004832

PATIENT
  Age: 39 Year
  Sex: Male

DRUGS (2)
  1. TERBINAFINE HCL [Suspect]
     Indication: NAIL DISORDER
     Dosage: PO
     Route: 048
  2. FLOXACILLIN SODIUM [Suspect]
     Dosage: PO
     Route: 048

REACTIONS (3)
  - BLISTER [None]
  - DRUG HYPERSENSITIVITY [None]
  - RASH [None]
